FAERS Safety Report 6520024-8 (Version None)
Quarter: 2009Q4

REPORT INFORMATION
  Report Type: 
  Country: None (occurrence: None)
  Receive Date: 20091229
  Receipt Date: 20091222
  Transmission Date: 20100525
  Serious: Yes (Death)
  Sender: FDA-Public Use
  Company Number: JP-ROCHE-676764

PATIENT
  Age: 60 Year
  Sex: Male

DRUGS (3)
  1. ROCEPHIN [Suspect]
     Indication: SEPSIS
     Route: 042
     Dates: start: 20080501, end: 20080501
  2. HEPARIN SODIUM [Concomitant]
     Route: 041
     Dates: start: 20080101, end: 20080101
  3. ANTITHROMBIN 3 [Concomitant]
     Route: 041
     Dates: start: 20080501, end: 20080501

REACTIONS (1)
  - DISEASE PROGRESSION [None]
